FAERS Safety Report 18453615 (Version 3)
Quarter: 2021Q3

REPORT INFORMATION
  Report Type: Report from Study
  Country: US (occurrence: US)
  Receive Date: 20201102
  Receipt Date: 20210722
  Transmission Date: 20211014
  Serious: Yes (Other)
  Sender: FDA-Public Use
  Company Number: US-SA-2020SA307983

PATIENT
  Age: 82 Year
  Sex: Male

DRUGS (4)
  1. TAMSULOSIN HYDROCHLORIDE. [Suspect]
     Active Substance: TAMSULOSIN HYDROCHLORIDE
     Indication: URINARY INCONTINENCE
  2. XTANDI [Suspect]
     Active Substance: ENZALUTAMIDE
     Dosage: 160 MG, QD
     Route: 048
  3. XTANDI [Suspect]
     Active Substance: ENZALUTAMIDE
     Indication: PROSTATE CANCER
     Dosage: 40 MG, QD
     Route: 048
     Dates: start: 20200110
  4. XTANDI [Suspect]
     Active Substance: ENZALUTAMIDE
     Dosage: 160 MG, QD
     Route: 048
     Dates: start: 20200918

REACTIONS (14)
  - Memory impairment [Not Recovered/Not Resolved]
  - Muscle spasms [Unknown]
  - Head injury [Unknown]
  - Product dose omission in error [Unknown]
  - Seizure [Unknown]
  - Condition aggravated [Not Recovered/Not Resolved]
  - Arthralgia [Unknown]
  - Groin pain [Unknown]
  - Urinary incontinence [Unknown]
  - Tongue injury [Unknown]
  - Pain [Unknown]
  - Trance [Unknown]
  - Anal incontinence [Unknown]
  - Contusion [Unknown]

NARRATIVE: CASE EVENT DATE: 20210707
